FAERS Safety Report 15138399 (Version 2)
Quarter: 2018Q3

REPORT INFORMATION
  Report Type: Spontaneous
  Country: IT (occurrence: IT)
  Receive Date: 20180713
  Receipt Date: 20180726
  Transmission Date: 20181010
  Serious: Yes (Other)
  Sender: FDA-Public Use
  Company Number: IT-STRIDES ARCOLAB LIMITED-2018SP005795

PATIENT

DRUGS (6)
  1. METHYLPREDNISOLONE. [Suspect]
     Active Substance: METHYLPREDNISOLONE
     Dosage: 2 MG/KG, QD
     Route: 042
  2. TACROLIMUS. [Suspect]
     Active Substance: TACROLIMUS
     Indication: LIVER TRANSPLANT
     Dosage: 0.04 MG/KG, BID
     Route: 048
  3. METHYLPREDNISOLONE. [Suspect]
     Active Substance: METHYLPREDNISOLONE
     Dosage: UNK, DOSE WAS TAPPERED
     Route: 042
  4. HEPARIN SODIUM. [Concomitant]
     Active Substance: HEPARIN SODIUM
     Indication: ANTICOAGULANT THERAPY
     Dosage: 10 U/KG/H
     Route: 042
  5. METHYLPREDNISOLONE. [Suspect]
     Active Substance: METHYLPREDNISOLONE
     Indication: LIVER TRANSPLANT
     Dosage: 10 MG/KG, UNKNOWN
     Route: 065
  6. AMPICILLIN AND SULBACTAM [Concomitant]
     Active Substance: AMPICILLIN SODIUM\SULBACTAM SODIUM
     Indication: ANTIBIOTIC PROPHYLAXIS
     Dosage: 50MG/KG EVERY SIX HOURS
     Route: 042

REACTIONS (4)
  - Candida infection [Recovered/Resolved]
  - Shock haemorrhagic [Unknown]
  - Pseudomonas infection [Unknown]
  - Infective aneurysm [Recovered/Resolved]
